FAERS Safety Report 14696381 (Version 1)
Quarter: 2018Q1

REPORT INFORMATION
  Report Type: Report from Study
  Country: None (occurrence: US)
  Receive Date: 20180330
  Receipt Date: 20180330
  Transmission Date: 20180509
  Serious: Yes (Other)
  Sender: FDA-Public Use
  Company Number: US-ABBVIE-18P-163-2302131-00

PATIENT
  Age: 56 Year
  Sex: Female

DRUGS (5)
  1. HYDROCODONE [Concomitant]
     Active Substance: HYDROCODONE
     Indication: PRODUCT USED FOR UNKNOWN INDICATION
     Route: 065
  2. SYNTHROID [Suspect]
     Active Substance: LEVOTHYROXINE SODIUM
     Indication: HYPOTHYROIDISM
     Route: 048
  3. LOSARTAN. [Concomitant]
     Active Substance: LOSARTAN
     Indication: HYPERTENSION
     Route: 065
     Dates: end: 201803
  4. SYNTHROID [Suspect]
     Active Substance: LEVOTHYROXINE SODIUM
     Indication: HYPOTHYROIDISM
     Route: 048
     Dates: start: 201501, end: 201612
  5. SYNTHROID [Suspect]
     Active Substance: LEVOTHYROXINE SODIUM
     Indication: HYPOTHYROIDISM
     Route: 048
     Dates: start: 201612, end: 201803

REACTIONS (14)
  - Blood thyroid stimulating hormone decreased [Not Recovered/Not Resolved]
  - Cubital tunnel syndrome [Recovering/Resolving]
  - Cubital tunnel syndrome [Recovered/Resolved]
  - Hepatic steatosis [Recovered/Resolved]
  - Weight increased [Recovered/Resolved]
  - Blood pressure normal [Not Recovered/Not Resolved]
  - Weight decreased [Not Recovered/Not Resolved]
  - Dysgraphia [Recovered/Resolved]
  - Carpal tunnel syndrome [Recovered/Resolved]
  - Arthritis [Recovering/Resolving]
  - Grip strength decreased [Recovered/Resolved]
  - Trigger finger [Recovering/Resolving]
  - Hepatic enzyme abnormal [Not Recovered/Not Resolved]
  - Weight increased [Recovering/Resolving]

NARRATIVE: CASE EVENT DATE: 201609
